FAERS Safety Report 6765072-8 (Version None)
Quarter: 2010Q2

REPORT INFORMATION
  Report Type: 
  Country: None (occurrence: None)
  Receive Date: 20100609
  Receipt Date: 20100609
  Transmission Date: 20101027
  Serious: Yes (Hospitalization)
  Sender: FDA-Public Use
  Company Number: None

PATIENT
  Sex: Female
  Weight: 59.31 kg

DRUGS (1)
  1. MEMANTINE HCL [Suspect]
     Dosage: 1030 MG

REACTIONS (7)
  - BACK PAIN [None]
  - BLOOD AMYLASE INCREASED [None]
  - LIPASE INCREASED [None]
  - NAUSEA [None]
  - PAIN [None]
  - PANCREATIC DUCT DILATATION [None]
  - PANCREATIC MASS [None]
